FAERS Safety Report 5334199-X (Version None)
Quarter: 2007Q2

REPORT INFORMATION
  Report Type: 
  Country: None (occurrence: None)
  Receive Date: 20070522
  Receipt Date: 20070507
  Transmission Date: 20071010
  Serious: Yes (Hospitalization)
  Sender: FDA-Public Use
  Company Number: SPV1-2007-02297

PATIENT
  Age: 77 Year
  Sex: Female

DRUGS (5)
  1. MIDODRINE HYDROCHLORIDE [Suspect]
     Indication: ORTHOSTATIC HYPOTENSION
     Dosage: 2 MG, 2X/DAY:BID
     Dates: start: 20061026, end: 20061028
  2. NEODOPASTON (CARBIDOLA, LEVODOPA) [Concomitant]
  3. DOPS (DROXIDOPA) [Concomitant]
  4. BI SIFROL (PRAMIPEXOLE DIHYDROCHLORIDE) [Concomitant]
  5. GASTERD D (FAMOTIDINE) [Concomitant]

REACTIONS (1)
  - STRESS CARDIOMYOPATHY [None]
